FAERS Safety Report 20822311 (Version 2)
Quarter: 2022Q2

REPORT INFORMATION
  Report Type: Spontaneous
  Country: US (occurrence: US)
  Receive Date: 20220512
  Receipt Date: 20220609
  Transmission Date: 20220720
  Serious: Yes (Other)
  Sender: FDA-Public Use
  Company Number: US-PFIZER INC-202200668041

PATIENT
  Age: 79 Year
  Sex: Female
  Weight: 89.36 kg

DRUGS (5)
  1. METHOTREXATE SODIUM [Suspect]
     Active Substance: METHOTREXATE SODIUM
     Dosage: 10 MG
     Dates: start: 2017
  2. XELJANZ [Suspect]
     Active Substance: TOFACITINIB CITRATE
     Indication: Psoriatic arthropathy
     Dosage: 5 MG, 2X/DAY
     Route: 048
     Dates: start: 202004, end: 202108
  3. XELJANZ [Suspect]
     Active Substance: TOFACITINIB CITRATE
     Indication: Psoriasis
  4. OXYMETAZOLINE HYDROCHLORIDE [Concomitant]
     Active Substance: OXYMETAZOLINE HYDROCHLORIDE
     Indication: Seasonal allergy
     Dosage: UNK
     Route: 048
  5. HYDROCHLOROTHIAZIDE\TRIAMTERENE [Concomitant]
     Active Substance: HYDROCHLOROTHIAZIDE\TRIAMTERENE
     Indication: Hypertension
     Dosage: UNK
     Route: 048

REACTIONS (10)
  - Thrombosis [Unknown]
  - Atrial fibrillation [Unknown]
  - Aortic valve replacement [Unknown]
  - Malignant melanoma [Unknown]
  - Dyspnoea [Unknown]
  - Palpitations [Unknown]
  - Fluid retention [Unknown]
  - Abdominal distension [Unknown]
  - Weight increased [Unknown]
  - Intentional dose omission [Unknown]
